FAERS Safety Report 21163700 (Version 1)
Quarter: 2022Q3

REPORT INFORMATION
  Report Type: Report from Study
  Country: US (occurrence: US)
  Receive Date: 20220802
  Receipt Date: 20220802
  Transmission Date: 20221027
  Serious: Yes (Hospitalization)
  Sender: FDA-Public Use
  Company Number: US-JNJFOC-20220756414

PATIENT
  Age: 73 Year
  Sex: Female

DRUGS (1)
  1. MACITENTAN [Suspect]
     Active Substance: MACITENTAN
     Indication: Product used for unknown indication
     Route: 048
     Dates: start: 202205

REACTIONS (7)
  - Fluid retention [Recovering/Resolving]
  - Oxygen therapy [Not Recovered/Not Resolved]
  - Weight increased [Unknown]
  - Cardiac operation [Unknown]
  - Headache [Unknown]
  - Oropharyngeal pain [Unknown]
  - Back pain [Unknown]

NARRATIVE: CASE EVENT DATE: 20220101
